FAERS Safety Report 25804535 (Version 2)
Quarter: 2025Q4

REPORT INFORMATION
  Report Type: Spontaneous
  Country: US (occurrence: US)
  Receive Date: 20250915
  Receipt Date: 20251008
  Transmission Date: 20260118
  Serious: Yes (Other)
  Sender: PFIZER
  Company Number: US-PFIZER INC-202500180549

PATIENT
  Age: 43 Year
  Sex: Male

DRUGS (1)
  1. SULFAMETHOXAZOLE\TRIMETHOPRIM [Suspect]
     Active Substance: SULFAMETHOXAZOLE\TRIMETHOPRIM
     Indication: Toxoplasmosis prophylaxis
     Dosage: UNK

REACTIONS (5)
  - Renal salt-wasting syndrome [Unknown]
  - Hyponatraemia [Unknown]
  - Condition aggravated [Unknown]
  - Seizure [Unknown]
  - Off label use [Unknown]
